FAERS Safety Report 16889695 (Version 2)
Quarter: 2019Q4

REPORT INFORMATION
  Report Type: Spontaneous
  Country: IT (occurrence: IT)
  Receive Date: 20191007
  Receipt Date: 20191108
  Transmission Date: 20200122
  Serious: Yes (Hospitalization, Other)
  Sender: FDA-Public Use
  Company Number: IT-PFIZER INC-2019425591

PATIENT
  Age: 59 Year
  Sex: Male

DRUGS (9)
  1. RANITIDINA HEXAL [Concomitant]
     Active Substance: RANITIDINE HYDROCHLORIDE
     Dosage: UNK
  2. CUBICIN [Suspect]
     Active Substance: DAPTOMYCIN
     Indication: ENDOCARDITIS
     Dosage: 1 DF, 1X/DAY
     Route: 042
     Dates: start: 20190913
  3. LUVION [CANRENOIC ACID] [Concomitant]
     Active Substance: CANRENOIC ACID
     Dosage: UNK
  4. LASIX [Concomitant]
     Active Substance: FUROSEMIDE
     Dosage: UNK
  5. DIFLUCAN [Suspect]
     Active Substance: FLUCONAZOLE
     Indication: CANDIDA INFECTION
     Dosage: 1 DF, 1X/DAY
     Route: 048
     Dates: start: 20190913
  6. METADONE CLORIDRATO MOLTENI [Concomitant]
     Active Substance: METHADONE HYDROCHLORIDE
     Dosage: UNK
  7. CONTRAMAL [Concomitant]
     Active Substance: TRAMADOL HYDROCHLORIDE
     Dosage: UNK
  8. MEROPENEM AUROBINDO [Suspect]
     Active Substance: MEROPENEM
     Indication: ABDOMINAL ABSCESS
     Dosage: 3 DF, 1X/DAY
     Route: 042
     Dates: start: 20190913
  9. ZINFORO [Suspect]
     Active Substance: CEFTAROLINE FOSAMIL
     Indication: SEPSIS
     Dosage: 2 DF, 1X/DAY
     Route: 042
     Dates: start: 20190913

REACTIONS (4)
  - Off label use [Unknown]
  - Renal failure [Recovering/Resolving]
  - Product use issue [Unknown]
  - Azotaemia [Unknown]

NARRATIVE: CASE EVENT DATE: 20190916
